FAERS Safety Report 10168805 (Version 3)
Quarter: 2014Q2

REPORT INFORMATION
  Report Type: Spontaneous
  Country: GB (occurrence: None)
  Receive Date: 20140509
  Receipt Date: 20140520
  Transmission Date: 20141212
  Serious: Yes (Other)
  Sender: FDA-Public Use
  Company Number: AUR-APL-2014-05321

PATIENT
  Age: 59 Year
  Sex: Male
  Weight: 84 kg

DRUGS (6)
  1. RAMIPRIL (RAMIPRIL) [Suspect]
     Indication: HYPERTENSION
     Route: 048
     Dates: start: 20140101
  2. AMLODIPINE (AMLODIPINE) [Concomitant]
  3. FERROUS FUMARATE (FERROUS FUMARATE) [Concomitant]
  4. METFORMIN (METFORMIN) [Concomitant]
  5. OMEPRAZOLE (OMEPRAZOLE) [Concomitant]
  6. PROCHLORPERAZINE (PROCHLORPERAZINE) [Concomitant]

REACTIONS (2)
  - Dizziness [None]
  - Product substitution issue [None]
